FAERS Safety Report 4303521-5 (Version None)
Quarter: 2004Q1

REPORT INFORMATION
  Report Type: 
  Country: None (occurrence: None)
  Receive Date: 20040225
  Receipt Date: 20030924
  Transmission Date: 20041129
  Serious: Yes (Hospitalization)
  Sender: FDA-Public Use
  Company Number: 200319277GDDC

PATIENT
  Age: 66 Year
  Sex: Female

DRUGS (2)
  1. TAXOTERE [Suspect]
     Indication: BREAST CANCER METASTATIC
     Route: 042
     Dates: start: 20030416, end: 20030718
  2. VINORELBINE TARTRATE [Suspect]
     Indication: BREAST CANCER METASTATIC
     Route: 042
     Dates: start: 20030416, end: 20030801

REACTIONS (11)
  - ASCITES [None]
  - ASTHENIA [None]
  - CARDIAC DISORDER [None]
  - ENDOCRINE DISORDER [None]
  - FLUID RETENTION [None]
  - HAEMATOTOXICITY [None]
  - HAEMOGLOBIN DECREASED [None]
  - HYPOALBUMINAEMIA [None]
  - HYPOKALAEMIA [None]
  - OEDEMA PERIPHERAL [None]
  - SHOCK [None]
